FAERS Safety Report 6193476-3 (Version None)
Quarter: 2009Q2

REPORT INFORMATION
  Report Type: 
  Country: None (occurrence: None)
  Receive Date: 20090518
  Receipt Date: 20090507
  Transmission Date: 20091009
  Serious: Yes (Death, Other)
  Sender: FDA-Public Use
  Company Number: DE-BIOGENIDEC-2008BI021562

PATIENT
  Age: 58 Year
  Sex: Female

DRUGS (7)
  1. TYSABRI [Suspect]
     Indication: RELAPSING-REMITTING MULTIPLE SCLEROSIS
     Route: 042
     Dates: start: 20071001, end: 20080523
  2. CORTISONE [Concomitant]
     Indication: MULTIPLE SCLEROSIS RELAPSE
     Dates: start: 20080711, end: 20080714
  3. CIPRALEX [Concomitant]
     Dates: start: 20060101
  4. DRONABINOL [Concomitant]
     Dates: start: 20060101
  5. FURADANTIN [Concomitant]
     Dates: start: 20080601
  6. ANTIBIOTICS [Concomitant]
  7. DRIDASE [Concomitant]
     Indication: MICTURITION URGENCY
     Dates: start: 20060101

REACTIONS (2)
  - ERYTHEMA MULTIFORME [None]
  - PULMONARY EMBOLISM [None]
